FAERS Safety Report 25414990 (Version 1)
Quarter: 2025Q2

REPORT INFORMATION
  Report Type: Report from Study
  Country: BE (occurrence: BE)
  Receive Date: 20250609
  Receipt Date: 20250609
  Transmission Date: 20250717
  Serious: Yes (Other)
  Sender: ALEXION PHARMACEUTICALS
  Company Number: BE-AstraZeneca-CH-00876670A

PATIENT

DRUGS (1)
  1. ACALABRUTINIB [Suspect]
     Active Substance: ACALABRUTINIB
     Route: 065

REACTIONS (3)
  - Atrial fibrillation [Unknown]
  - Hypertension [Unknown]
  - Acquired gene mutation [Unknown]
